FAERS Safety Report 9162307 (Version 1)
Quarter: 2013Q1

REPORT INFORMATION
  Report Type: Spontaneous
  Country: ES (occurrence: ES)
  Receive Date: 20130314
  Receipt Date: 20130314
  Transmission Date: 20140127
  Serious: Yes (Hospitalization)
  Sender: FDA-Public Use
  Company Number: PHHY2013ES023194

PATIENT
  Age: 69 Year
  Sex: Female
  Weight: 74 kg

DRUGS (5)
  1. DAFIRO HCT [Suspect]
     Indication: HYPERTENSION
     Dosage: 1 DF, QD (160 MG VALS, 10 MG AMLO AND 12.5 MG HYDRO)
     Route: 048
     Dates: start: 20120501, end: 20121020
  2. ESCITALOPRAM [Interacting]
     Indication: DEPRESSION
     Dosage: 1 DF, QD
     Route: 048
     Dates: start: 2010
  3. LORAZEPAM CINFA [Concomitant]
     Dosage: 1 MG, UNK
     Dates: start: 20120501
  4. DIANBEN [Concomitant]
     Dosage: 850 MG, UNK
  5. SIMVASTATIN [Concomitant]
     Dosage: UNK UKN, UNK
     Dates: start: 201207

REACTIONS (2)
  - Drug interaction [Unknown]
  - Hyponatraemia [Recovered/Resolved]
